FAERS Safety Report 20984582 (Version 1)
Quarter: 2022Q2

REPORT INFORMATION
  Report Type: Spontaneous
  Country: US (occurrence: None)
  Receive Date: 20220621
  Receipt Date: 20220621
  Transmission Date: 20220721
  Serious: No
  Sender: FDA-Public Use
  Company Number: US-ROCHE-2833335

PATIENT
  Age: 74 Year
  Sex: Female

DRUGS (1)
  1. XELODA [Suspect]
     Active Substance: CAPECITABINE
     Indication: Product used for unknown indication
     Route: 048
     Dates: start: 20210224

REACTIONS (9)
  - Palmar-plantar erythrodysaesthesia syndrome [Recovered/Resolved]
  - Gingival pain [Unknown]
  - Diarrhoea [Recovered/Resolved]
  - Skin disorder [Unknown]
  - Hypotonia [Unknown]
  - Vision blurred [Unknown]
  - Hyperaesthesia [Unknown]
  - Blister [Unknown]
  - Wound [Unknown]

NARRATIVE: CASE EVENT DATE: 20210518
